FAERS Safety Report 13093644 (Version 1)
Quarter: 2017Q1

REPORT INFORMATION
  Report Type: Spontaneous
  Country: US (occurrence: US)
  Receive Date: 20170106
  Receipt Date: 20170106
  Transmission Date: 20170428
  Serious: No
  Sender: FDA-Public Use
  Company Number: US-TARO-2016TAR00865

PATIENT
  Sex: Male

DRUGS (1)
  1. ECONAZOLE NITRATE. [Suspect]
     Active Substance: ECONAZOLE NITRATE

REACTIONS (1)
  - Hypersensitivity [Unknown]
